FAERS Safety Report 17836157 (Version 4)
Quarter: 2020Q3

REPORT INFORMATION
  Report Type: Report from Study
  Country: AU (occurrence: AU)
  Receive Date: 20200528
  Receipt Date: 20200901
  Transmission Date: 20201103
  Serious: Yes (Hospitalization, Other)
  Sender: FDA-Public Use
  Company Number: AU-SECURA BIO, INC.-2020AU002898

PATIENT

DRUGS (6)
  1. ACICLOVIR [Concomitant]
     Active Substance: ACYCLOVIR
     Indication: PRODUCT USED FOR UNKNOWN INDICATION
     Dosage: UNK
     Dates: start: 20190711
  2. ONDANSETRON [Concomitant]
     Active Substance: ONDANSETRON
     Indication: PRODUCT USED FOR UNKNOWN INDICATION
     Dosage: UNK
     Dates: start: 20200422
  3. METRONIDAZOLE. [Concomitant]
     Active Substance: METRONIDAZOLE
     Indication: PRODUCT USED FOR UNKNOWN INDICATION
     Dosage: UNK
     Dates: start: 20200323, end: 20200602
  4. LBH589 [Suspect]
     Active Substance: PANOBINOSTAT
     Indication: RHABDOID TUMOUR
     Dosage: 40 MG, QW
     Route: 048
     Dates: start: 20200422, end: 20200505
  5. LBH589 [Suspect]
     Active Substance: PANOBINOSTAT
     Dosage: 30 MG, QW
     Route: 048
     Dates: start: 20200513, end: 20200519
  6. CEFEPIME [Concomitant]
     Active Substance: CEFEPIME HYDROCHLORIDE
     Indication: PRODUCT USED FOR UNKNOWN INDICATION
     Dosage: UNK
     Dates: start: 20200522, end: 20200525

REACTIONS (5)
  - Dehydration [Recovered/Resolved]
  - Malnutrition [Recovered/Resolved]
  - Sinus bradycardia [Recovered/Resolved]
  - Decreased appetite [Recovering/Resolving]
  - Fatigue [Recovered/Resolved]

NARRATIVE: CASE EVENT DATE: 20200422
